FAERS Safety Report 23057440 (Version 7)
Quarter: 2024Q4

REPORT INFORMATION
  Report Type: Report from Study
  Country: US (occurrence: US)
  Receive Date: 20231012
  Receipt Date: 20241203
  Transmission Date: 20250115
  Serious: Yes (Hospitalization, Other)
  Sender: GLAXOSMITHKLINE
  Company Number: US-GLAXOSMITHKLINE-US2023135700

PATIENT

DRUGS (9)
  1. NIRAPARIB [Suspect]
     Active Substance: NIRAPARIB
     Indication: Ovarian cancer
     Dosage: 100 MG, QD
     Dates: start: 20230908
  2. NIRAPARIB [Suspect]
     Active Substance: NIRAPARIB
     Dosage: 100 MG, QD
     Route: 048
  3. NIRAPARIB [Suspect]
     Active Substance: NIRAPARIB
     Dosage: 100 MG, QD
  4. NIRAPARIB [Suspect]
     Active Substance: NIRAPARIB
     Dosage: 100 MG, QD
  5. NIRAPARIB [Suspect]
     Active Substance: NIRAPARIB
     Dosage: 100 MG, QD
  6. NIRAPARIB [Suspect]
     Active Substance: NIRAPARIB
     Dosage: 100 MG, QD
     Route: 048
  7. CLEARLAX [Concomitant]
     Active Substance: POLYETHYLENE GLYCOL 3350
     Indication: Product used for unknown indication
     Dosage: UNK
  8. Dulcolax [Concomitant]
     Indication: Product used for unknown indication
     Dosage: UNK
  9. SENOKOT [Concomitant]
     Active Substance: SENNOSIDES
     Indication: Product used for unknown indication
     Dosage: UNK

REACTIONS (23)
  - Intestinal obstruction [Unknown]
  - Neuropathy peripheral [Unknown]
  - Polypectomy [Unknown]
  - Constipation [Unknown]
  - COVID-19 [Unknown]
  - Insomnia [Unknown]
  - Blood pressure increased [Recovered/Resolved]
  - Nasal congestion [Not Recovered/Not Resolved]
  - Ear infection [Unknown]
  - Contusion [Unknown]
  - Food intolerance [Unknown]
  - Sinusitis [Unknown]
  - Intervertebral disc protrusion [Unknown]
  - Migraine [Unknown]
  - Abdominal distension [Unknown]
  - Flatulence [Unknown]
  - Arthritis [Unknown]
  - Anxiety [Unknown]
  - Decreased appetite [Unknown]
  - Dehydration [Unknown]
  - Ageusia [Unknown]
  - Product dose omission issue [Unknown]
  - Incorrect dose administered [Unknown]

NARRATIVE: CASE EVENT DATE: 20230908
